FAERS Safety Report 17935505 (Version 1)
Quarter: 2020Q2

REPORT INFORMATION
  Report Type: Spontaneous
  Country: US (occurrence: US)
  Receive Date: 20200624
  Receipt Date: 20200624
  Transmission Date: 20200714
  Serious: No
  Sender: FDA-Public Use
  Company Number: US-ALNYLAM PHARMACEUTICALS, INC.-ALN-2020-000945

PATIENT
  Age: 72 Year
  Sex: Male
  Weight: 86.4 kg

DRUGS (1)
  1. ONPATTRO [Suspect]
     Active Substance: PATISIRAN SODIUM
     Indication: HEREDITARY NEUROPATHIC AMYLOIDOSIS
     Dosage: 26 MILLIGRAM, Q3W
     Route: 042

REACTIONS (2)
  - Product dose omission [Unknown]
  - Vascular access complication [Unknown]

NARRATIVE: CASE EVENT DATE: 20200616
